FAERS Safety Report 8186501-1 (Version None)
Quarter: 2012Q1

REPORT INFORMATION
  Report Type: 
  Country: None (occurrence: None)
  Receive Date: 20120302
  Receipt Date: 20120302
  Transmission Date: 20120608
  Serious: Yes (Death)
  Sender: FDA-Public Use
  Company Number: None

PATIENT
  Sex: Female
  Weight: 40.8237 kg

DRUGS (2)
  1. PLAVIX [Suspect]
     Dates: start: 20101101
  2. PLAVIX [Suspect]
     Dates: start: 20101020

REACTIONS (1)
  - INCORRECT DOSE ADMINISTERED [None]
